FAERS Safety Report 18617297 (Version 1)
Quarter: 2020Q4

REPORT INFORMATION
  Report Type: Spontaneous
  Country: FR (occurrence: FR)
  Receive Date: 20201215
  Receipt Date: 20201215
  Transmission Date: 20210114
  Serious: Yes (Hospitalization)
  Sender: FDA-Public Use
  Company Number: FR-TEVA-2020-FR-1857201

PATIENT
  Age: 43 Year
  Sex: Female
  Weight: 72 kg

DRUGS (7)
  1. LOXAPAC, SOLUTION BUVABLE [Suspect]
     Active Substance: LOXAPINE
     Indication: SCHIZOPHRENIA
     Dosage: 25 GTT
     Route: 048
  2. AKINETON L.P. 4 MG, COMPRIME ENROBE A LIBERATION PROLONGEE [Concomitant]
     Indication: PARKINSON^S DISEASE
     Dosage: UNIT DOSE: 8 MG
     Route: 048
  3. CLOZAPINE. [Suspect]
     Active Substance: CLOZAPINE
     Indication: SCHIZOPHRENIA
     Dosage: 250 MG
     Route: 048
     Dates: start: 201909
  4. LAMICTAL [Concomitant]
     Active Substance: LAMOTRIGINE
     Indication: BIPOLAR DISORDER
     Dosage: 300 MG
     Route: 048
     Dates: start: 201501
  5. DEPAKOTE [Suspect]
     Active Substance: DIVALPROEX SODIUM
     Indication: BIPOLAR DISORDER
     Route: 048
     Dates: start: 20200914, end: 20200921
  6. LEVOTHYROX [Concomitant]
     Active Substance: LEVOTHYROXINE
     Indication: HYPOTHYROIDISM
     Dosage: 100 MICROGRAM,
     Route: 048
  7. THERALENE [Suspect]
     Active Substance: TRIMEPRAZINE
     Indication: INSOMNIA
     Route: 048
     Dates: start: 20200917

REACTIONS (3)
  - Rhabdomyolysis [Recovering/Resolving]
  - Hepatocellular injury [Recovered/Resolved]
  - Acute kidney injury [Recovering/Resolving]

NARRATIVE: CASE EVENT DATE: 20200921
